FAERS Safety Report 4823663-5 (Version None)
Quarter: 2005Q4

REPORT INFORMATION
  Report Type: 
  Country: None (occurrence: None)
  Receive Date: 20051109
  Receipt Date: 20051104
  Transmission Date: 20060501
  Serious: Yes (Life-Threatening, Other)
  Sender: FDA-Public Use
  Company Number: 2005JP002110

PATIENT
  Age: 74 Year
  Sex: Male
  Weight: 60 kg

DRUGS (7)
  1. CEFAZOLIN [Suspect]
     Indication: NEPHRITIS
     Dosage: 1G TWICE PER DAY
     Route: 042
     Dates: start: 20051024
  2. MEXITIL [Concomitant]
  3. SELBEX [Concomitant]
  4. AMLODIPINE BESYLATE [Concomitant]
  5. SINGULAIR [Concomitant]
  6. INDERAL [Concomitant]
  7. ALESION [Concomitant]

REACTIONS (2)
  - BRONCHOSTENOSIS [None]
  - DYSPNOEA [None]
